FAERS Safety Report 13963244 (Version 1)
Quarter: 2017Q3

REPORT INFORMATION
  Report Type: Spontaneous
  Country: US (occurrence: None)
  Receive Date: 20170913
  Receipt Date: 20170913
  Transmission Date: 20171128
  Serious: Yes (Other)
  Sender: FDA-Public Use
  Company Number: None

PATIENT
  Age: 70 Year
  Sex: Female
  Weight: 106.9 kg

DRUGS (2)
  1. RIBOCICLIB 400MG [Suspect]
     Active Substance: RIBOCICLIB
     Indication: ENDOMETRIAL CANCER
     Route: 048
     Dates: start: 20170802
  2. LETROZOLE 2.5 MG [Suspect]
     Active Substance: LETROZOLE
     Indication: ENDOMETRIAL CANCER
     Route: 048
     Dates: start: 20170802

REACTIONS (1)
  - Alanine aminotransferase increased [None]

NARRATIVE: CASE EVENT DATE: 20170912
